FAERS Safety Report 19257412 (Version 9)
Quarter: 2021Q3

REPORT INFORMATION
  Report Type: Spontaneous
  Country: ZA (occurrence: ZA)
  Receive Date: 20210513
  Receipt Date: 20210720
  Transmission Date: 20211014
  Serious: Yes (Other)
  Sender: FDA-Public Use
  Company Number: ZA-CELLTRION INC.-2021ZA006442

PATIENT

DRUGS (4)
  1. MEZAVANT [Concomitant]
     Active Substance: MESALAMINE
     Indication: CROHN^S DISEASE
  2. REMSIMA [Suspect]
     Active Substance: INFLIXIMAB
     Indication: CROHN^S DISEASE
     Dosage: 350 MG, EVERY 0, 2, AND 6 WEEKS
     Route: 042
     Dates: start: 20210331
  3. AZATHIOPRINE. [Concomitant]
     Active Substance: AZATHIOPRINE
     Indication: CROHN^S DISEASE
  4. REMSIMA [Suspect]
     Active Substance: INFLIXIMAB
     Dosage: 300 MG, 0 WEEKS, 2 WEEKS, 6 WEEKS
     Route: 042
     Dates: start: 20210331

REACTIONS (9)
  - Arthritis [Unknown]
  - Overdose [Unknown]
  - Dysphagia [Recovered/Resolved]
  - Crohn^s disease [Unknown]
  - Arthralgia [Unknown]
  - Swelling [Recovered/Resolved]
  - Aphthous ulcer [Unknown]
  - Surgery [Unknown]
  - Headache [Not Recovered/Not Resolved]

NARRATIVE: CASE EVENT DATE: 20210415
